FAERS Safety Report 6121721-9 (Version None)
Quarter: 2009Q1

REPORT INFORMATION
  Report Type: 
  Country: None (occurrence: None)
  Receive Date: 20090317
  Receipt Date: 20090306
  Transmission Date: 20090719
  Serious: Yes (Other)
  Sender: FDA-Public Use
  Company Number: US-PFIZER INC-2009173120

PATIENT
  Sex: Female
  Weight: 83 kg

DRUGS (9)
  1. LIPITOR [Suspect]
     Indication: HYPERLIPIDAEMIA
     Dosage: UNK
     Dates: end: 20090207
  2. LIPITOR [Interacting]
     Indication: CORONARY ARTERY DISEASE
  3. PLAVIX [Interacting]
     Dosage: UNK
  4. ASPIRIN [Concomitant]
     Dosage: 325 MG, UNK
  5. COREG [Concomitant]
     Dosage: 12.5 MG, 2X/DAY
  6. NEURONTIN [Concomitant]
     Dosage: 300 MG, 1X/DAY
  7. KLONOPIN [Concomitant]
     Dosage: 1 MG, 1X/DAY
  8. NORVASC [Concomitant]
     Dosage: 5 MG, 1X/DAY
     Route: 048
  9. PAXIL [Concomitant]
     Dosage: 20 MG, 1X/DAY
     Route: 048

REACTIONS (3)
  - DRUG INTERACTION [None]
  - MYALGIA [None]
  - STENT OCCLUSION [None]
